FAERS Safety Report 8186860-X (Version None)
Quarter: 2012Q1

REPORT INFORMATION
  Report Type: 
  Country: None (occurrence: None)
  Receive Date: 20120302
  Receipt Date: 20120222
  Transmission Date: 20120608
  Serious: Yes (Hospitalization)
  Sender: FDA-Public Use
  Company Number: TPA2011A08297

PATIENT
  Age: 66 Year
  Sex: Female
  Weight: 59.42 kg

DRUGS (14)
  1. ZOFRAN [Suspect]
     Indication: NAUSEA
     Dosage: 1 DOSAGE FORMS, EVERY 6 HRS, AS NEEDED, ORAL
     Route: 048
     Dates: end: 20090828
  2. MEGACE [Suspect]
     Indication: DECREASED APPETITE
     Dosage: DAILY, ORAL
     Route: 048
  3. ARTIFICIAL TEAR (HYPROMELLOSE) [Concomitant]
  4. CIPRO [Concomitant]
  5. FERGON [Suspect]
     Indication: BLOOD IRON DECREASED
     Dosage: 325 MG, 2 IN 1 D, ORAL
     Route: 048
     Dates: start: 20090227, end: 20090828
  6. ACTONEL [Concomitant]
  7. DUTOGLIPITIN (INVESTIGATIONAL DRUG) [Suspect]
     Indication: TYPE 2 DIABETES MELLITUS
     Dates: start: 20090316, end: 20090406
  8. COLACE (DOCUSATE SODIUM) [Suspect]
     Indication: CONSTIPATION
     Dosage: 100 MG, 2 IN 1 D
     Dates: start: 20090402, end: 20090828
  9. ASPIRIN [Concomitant]
  10. LORTAB [Suspect]
     Indication: ANALGESIC THERAPY
     Dosage: 5 MG/500 MG EVERY 6 HRS, AS NEEDED
     Dates: start: 20090402, end: 20090828
  11. SUNITINIB MALATE [Suspect]
     Indication: RENAL CANCER
     Dosage: 100 MG, 2 IN 1 D
     Dates: start: 20090601, end: 20090828
  12. PIOGLITAZONE HYDROCHLORIDE [Suspect]
     Indication: DIABETES MELLITUS
     Dosage: 30 MG, ORAL
     Route: 048
     Dates: start: 20070604
  13. RANITIDINE HYDROCHLORIDE [Suspect]
     Indication: ULCER
     Dosage: 300 MG
     Dates: end: 20090828
  14. SIMVASTATIN [Suspect]
     Indication: BLOOD CHOLESTEROL INCREASED
     Dosage: 40 MG, 2 IN 1 D
     Dates: start: 20090227, end: 20090828

REACTIONS (9)
  - FATIGUE [None]
  - COGNITIVE DISORDER [None]
  - HEADACHE [None]
  - VOMITING [None]
  - BLOOD UREA INCREASED [None]
  - ABDOMINAL PAIN [None]
  - MENTAL STATUS CHANGES [None]
  - MALAISE [None]
  - CONFUSIONAL STATE [None]
